FAERS Safety Report 7070947-9 (Version None)
Quarter: 2010Q4

REPORT INFORMATION
  Report Type: 
  Country: None (occurrence: None)
  Receive Date: 20101027
  Receipt Date: 20101027
  Transmission Date: 20110411
  Serious: Yes (Life-Threatening)
  Sender: FDA-Public Use
  Company Number: None

PATIENT
  Age: 68 Year
  Sex: Female
  Weight: 68.0396 kg

DRUGS (1)
  1. ACTONEL [Suspect]
     Indication: BONE DENSITY DECREASED
     Dosage: 150MG ONCE A MONTH PO
     Route: 048
     Dates: start: 20101015, end: 20101015

REACTIONS (3)
  - ADVERSE REACTION [None]
  - FEELING ABNORMAL [None]
  - MYALGIA [None]
